FAERS Safety Report 10241263 (Version 1)
Quarter: 2014Q2

REPORT INFORMATION
  Report Type: Spontaneous
  Country: DK (occurrence: FR)
  Receive Date: 20140617
  Receipt Date: 20140617
  Transmission Date: 20141212
  Serious: Yes (Hospitalization)
  Sender: FDA-Public Use
  Company Number: FR-FRI-1000068213

PATIENT
  Age: 84 Year
  Sex: Female

DRUGS (12)
  1. CITALOPRAM [Suspect]
     Route: 048
     Dates: end: 20140503
  2. ALDACTONE [Suspect]
     Route: 048
     Dates: end: 20140503
  3. LASILIX [Suspect]
     Route: 048
     Dates: end: 20140503
  4. KREDEX [Suspect]
     Route: 048
  5. ODRIK [Suspect]
     Route: 048
     Dates: end: 20140503
  6. DISCOTRINE [Suspect]
     Route: 048
  7. STILNOX [Suspect]
     Route: 048
  8. THERALENE [Suspect]
     Route: 048
     Dates: end: 20140503
  9. ALPRAZOLAM [Suspect]
     Route: 048
     Dates: end: 20140503
  10. DOGMATIL [Suspect]
     Route: 048
     Dates: end: 20140503
  11. COUMADINE [Concomitant]
  12. OXYCONTIN [Concomitant]

REACTIONS (3)
  - Depressed level of consciousness [Recovered/Resolved]
  - Hypotension [Recovered/Resolved]
  - Fall [Recovered/Resolved]
